FAERS Safety Report 8923452 (Version 1)
Quarter: 2012Q4

REPORT INFORMATION
  Report Type: 
  Country: FR (occurrence: FR)
  Receive Date: 20121124
  Receipt Date: 20121124
  Transmission Date: 20130627
  Serious: Yes (Hospitalization)
  Sender: FDA-Public Use
  Company Number: FR-SANOFI-AVENTIS-2012SA067183

PATIENT
  Age: 76 Year
  Sex: Male

DRUGS (9)
  1. LASILIX [Suspect]
     Indication: INSUFFICIENCY CARDIAC
     Dosage: start date: Few years
     Route: 048
     Dates: end: 20120612
  2. CORDARONE [Suspect]
     Indication: ATRIAL FIBRILLATION
     Route: 048
  3. HEMIGOXINE NATIVELLE [Suspect]
     Indication: ATRIAL FIBRILLATION
     Route: 048
     Dates: start: 201102, end: 20120613
  4. ALDACTONE [Suspect]
     Indication: DRUG USE FOR UNKNOWN INDICATION
     Route: 048
     Dates: end: 20120618
  5. PREVISCAN [Concomitant]
     Route: 048
  6. LEVOTHYROX [Concomitant]
     Route: 048
  7. ROSUVASTATIN CALCIUM [Concomitant]
     Route: 048
  8. DIFFU K [Concomitant]
     Route: 048
  9. EUPANTOL [Concomitant]
     Route: 048

REACTIONS (2)
  - Cardioactive drug level increased [Recovered/Resolved]
  - Cardiac failure [Recovered/Resolved]
